FAERS Safety Report 9807353 (Version 2)
Quarter: 2014Q1

REPORT INFORMATION
  Report Type: Report from Study
  Country: US (occurrence: US)
  Receive Date: 20140110
  Receipt Date: 20140116
  Transmission Date: 20141002
  Serious: Yes (Other)
  Sender: FDA-Public Use
  Company Number: US-ROCHE-1331515

PATIENT
  Age: 82 Year
  Sex: Female

DRUGS (15)
  1. LUCENTIS [Suspect]
     Indication: AGE-RELATED MACULAR DEGENERATION
     Dosage: 0.5 MG/0.05 ML IN RIGHT EYE
     Route: 050
  2. LUTEIN [Concomitant]
     Route: 048
  3. PREDNISOLONE ACETATE [Concomitant]
     Dosage: RIGHT EYE
     Route: 047
  4. PROTONIX (UNITED STATES) [Concomitant]
  5. VERAPAMIL HYDROCHLORIDE [Concomitant]
  6. FLUOCINONIDE [Concomitant]
  7. ATORVASTATIN [Concomitant]
  8. MIRTAZAPINE [Concomitant]
  9. ASA [Concomitant]
     Route: 065
  10. NYSTATIN [Concomitant]
  11. FLUOXETINE [Concomitant]
  12. BETADINE [Concomitant]
  13. TROPICAMIDE [Concomitant]
     Dosage: 1 %
     Route: 065
  14. PHENYLEPHRINE [Concomitant]
     Dosage: 2.5 %
     Route: 065
  15. VIGAMOX [Concomitant]
     Dosage: 0.5%, RIGHT EYE
     Route: 047

REACTIONS (4)
  - Blindness [Unknown]
  - Endophthalmitis [Recovered/Resolved]
  - Infection [Unknown]
  - Retinal haemorrhage [Recovering/Resolving]
